FAERS Safety Report 6773667-0 (Version None)
Quarter: 2010Q2

REPORT INFORMATION
  Report Type: 
  Country: None (occurrence: None)
  Receive Date: 20100617
  Receipt Date: 20100330
  Transmission Date: 20101027
  Serious: Yes (Other)
  Sender: FDA-Public Use
  Company Number: US-ASTRAZENECA-2006UW06268

PATIENT
  Age: 13845 Day
  Sex: Male
  Weight: 97.5 kg

DRUGS (39)
  1. SEROQUEL [Suspect]
     Indication: ANXIETY
     Dosage: 25-100 MG
     Route: 048
     Dates: start: 19990801, end: 20050301
  2. SEROQUEL [Suspect]
     Indication: DEPRESSION
     Dosage: 25-100 MG
     Route: 048
     Dates: start: 19990801, end: 20050301
  3. SEROQUEL [Suspect]
     Indication: BIPOLAR DISORDER
     Dosage: 25-100 MG
     Route: 048
     Dates: start: 19990801, end: 20050301
  4. SEROQUEL [Suspect]
     Dosage: 25 - 600 MG
     Route: 048
     Dates: start: 19990803
  5. SEROQUEL [Suspect]
     Dosage: 25 - 600 MG
     Route: 048
     Dates: start: 19990803
  6. SEROQUEL [Suspect]
     Dosage: 25 - 600 MG
     Route: 048
     Dates: start: 19990803
  7. SEROQUEL [Suspect]
     Dosage: 300 MG TAB AM AND HS
     Route: 048
     Dates: start: 20000302
  8. SEROQUEL [Suspect]
     Dosage: 300 MG TAB AM AND HS
     Route: 048
     Dates: start: 20000302
  9. SEROQUEL [Suspect]
     Dosage: 300 MG TAB AM AND HS
     Route: 048
     Dates: start: 20000302
  10. ZYPREXA [Suspect]
     Dosage: 2.5-20 MG
     Route: 065
     Dates: start: 20010401, end: 20040301
  11. ZYPREXA [Suspect]
     Dosage: 10 - 20 MG
     Route: 048
     Dates: start: 20010330
  12. ZYPREXA [Suspect]
     Dosage: 15 MG TWO TIMES EQUALING 30 MG QHS
     Route: 065
     Dates: start: 20011102
  13. ABILIFY [Concomitant]
  14. GEODON [Concomitant]
     Dosage: 40 - 80 MG
     Dates: start: 20041213
  15. GEODON [Concomitant]
     Dates: start: 20060101
  16. RISPERDAL [Concomitant]
     Dosage: 1 MG, 2 MG - DISPENSED
     Dates: start: 20030307
  17. RISPERDAL [Concomitant]
     Dates: start: 20060101
  18. THORAZINE [Concomitant]
     Dates: start: 20051001, end: 20060801
  19. ATIVAN [Concomitant]
     Indication: IRRITABILITY
     Dosage: 2 - 6 MG
     Route: 048
     Dates: start: 20010313
  20. EFFEXOR XR [Concomitant]
     Indication: ANXIETY
     Dosage: 75 - 150 MG
     Route: 048
     Dates: start: 20010812
  21. REMERON [Concomitant]
     Dosage: 30 - 75 MG
     Dates: start: 20010912
  22. SYNTHROID [Concomitant]
     Dosage: 50 - 150 MG
     Route: 048
     Dates: start: 19930101
  23. AMBIEN [Concomitant]
     Indication: SLEEP DISORDER
     Route: 048
     Dates: start: 20000302
  24. AMBIEN [Concomitant]
     Indication: ANXIETY
     Route: 048
     Dates: start: 20000302
  25. AMBIEN [Concomitant]
     Route: 048
     Dates: start: 20010313
  26. AMBIEN [Concomitant]
     Route: 048
     Dates: start: 20010313
  27. PAXIL [Concomitant]
     Indication: ANXIETY
     Dates: start: 20010213
  28. DEPAKOTE [Concomitant]
     Dosage: 100 - 500 MG
     Route: 048
     Dates: start: 20010315
  29. DEPAKOTE [Concomitant]
     Dosage: 500 MG SIX AT BEDTIME
     Dates: start: 20011102
  30. DEPAKOTE [Concomitant]
     Route: 048
     Dates: start: 20011102
  31. WELLBUTRIN [Concomitant]
     Dates: start: 20021030
  32. CELEBREX [Concomitant]
     Dosage: 100 - 200 MG
     Route: 048
     Dates: start: 20021023
  33. PROPRANOLOL [Concomitant]
     Dosage: 20 - 40 MG
     Route: 048
     Dates: start: 20030524
  34. LIPITOR [Concomitant]
     Route: 048
     Dates: start: 20030227
  35. LITHIUM CARBONATE [Concomitant]
     Route: 048
     Dates: start: 20040309
  36. LISINOPRIL [Concomitant]
     Route: 048
     Dates: start: 20040309
  37. SIMVASTATIN [Concomitant]
     Route: 048
     Dates: start: 20040309
  38. TRAZODONE HCL [Concomitant]
     Route: 048
     Dates: start: 20040309
  39. LANSOPRAZOLE [Concomitant]
     Route: 048
     Dates: start: 20000302

REACTIONS (8)
  - BLOOD GLUCOSE INCREASED [None]
  - DIABETES MELLITUS [None]
  - DIABETES MELLITUS INADEQUATE CONTROL [None]
  - DIABETIC KETOACIDOSIS [None]
  - DIABETIC NEUROPATHY [None]
  - HYPERGLYCAEMIA [None]
  - METABOLIC SYNDROME [None]
  - TYPE 2 DIABETES MELLITUS [None]
